FAERS Safety Report 4695201-1 (Version None)
Quarter: 2005Q2

REPORT INFORMATION
  Report Type: 
  Country: None (occurrence: None)
  Receive Date: 20050614
  Receipt Date: 20050114
  Transmission Date: 20051028
  Serious: No
  Sender: FDA-Public Use
  Company Number: USA050188490

PATIENT
  Age: 48 Year
  Sex: Male

DRUGS (4)
  1. CIALIS [Suspect]
     Indication: ERECTILE DYSFUNCTION
     Dosage: 20 MG
  2. EFFEXOR [Concomitant]
  3. PERCOCET [Concomitant]
  4. CLARITIN-D [Concomitant]

REACTIONS (3)
  - BACK PAIN [None]
  - HEADACHE [None]
  - NASAL CONGESTION [None]
